FAERS Safety Report 9537654 (Version 2)
Quarter: 2013Q4

REPORT INFORMATION
  Report Type: Report from Study
  Country: US (occurrence: US)
  Receive Date: 20130919
  Receipt Date: 20131030
  Transmission Date: 20140711
  Serious: Yes (Hospitalization, Other)
  Sender: FDA-Public Use
  Company Number: US-US-EMD SERONO, INC.-7237475

PATIENT
  Sex: Female

DRUGS (1)
  1. REBIF [Suspect]
     Indication: PRODUCT USED FOR UNKNOWN INDICATION
     Route: 058
     Dates: start: 20071004

REACTIONS (4)
  - Breast cancer [Recovering/Resolving]
  - Metastases to bone [Not Recovered/Not Resolved]
  - Injection site atrophy [Not Recovered/Not Resolved]
  - Injection site bruising [Not Recovered/Not Resolved]
